FAERS Safety Report 8844896 (Version 1)
Quarter: 2012Q4

REPORT INFORMATION
  Report Type: Spontaneous
  Country: US (occurrence: None)
  Receive Date: 20120925
  Receipt Date: 20120925
  Transmission Date: 20130627
  Serious: Yes (Hospitalization, Other)
  Sender: FDA-Public Use
  Company Number: RB-23178-2011

PATIENT
  Age: 20 Year
  Sex: Male

DRUGS (1)
  1. SUBOXONE [Suspect]
     Indication: DRUG DEPENDENCE
     Dosage: Sublingual Film Sublingual
     Route: 060
     Dates: start: 20110228, end: 20110310

REACTIONS (2)
  - Drug withdrawal syndrome [None]
  - Off label use [None]
